FAERS Safety Report 10421416 (Version 2)
Quarter: 2015Q2

REPORT INFORMATION
  Report Type: Spontaneous
  Country: US (occurrence: US)
  Receive Date: 20140901
  Receipt Date: 20150512
  Transmission Date: 20150821
  Serious: Yes (Congenital Anomaly)
  Sender: FDA-Public Use
  Company Number: US-UCBSA-2014010068

PATIENT
  Sex: Male

DRUGS (2)
  1. CIMZIA [Suspect]
     Active Substance: CERTOLIZUMAB PEGOL
     Indication: CROHN^S DISEASE
     Dosage: UNKNOWN DOSE AND FREQUENCY
     Route: 064
  2. CIMZIA [Suspect]
     Active Substance: CERTOLIZUMAB PEGOL
     Dosage: UNK
     Route: 063

REACTIONS (3)
  - Cleft palate [Unknown]
  - Foetal exposure during pregnancy [Unknown]
  - Exposure during breast feeding [Unknown]
